FAERS Safety Report 21896259 (Version 1)
Quarter: 2023Q1

REPORT INFORMATION
  Report Type: Spontaneous
  Country: DE (occurrence: DE)
  Receive Date: 20230123
  Receipt Date: 20230123
  Transmission Date: 20230418
  Serious: No
  Sender: FDA-Public Use
  Company Number: DE-ALKEM LABORATORIES LIMITED-DE-ALKEM-2022-10869

PATIENT
  Age: 38 Year
  Sex: Female
  Weight: 44 kg

DRUGS (4)
  1. FINGOLIMOD [Suspect]
     Active Substance: FINGOLIMOD
     Indication: Relapsing-remitting multiple sclerosis
     Dosage: 0.5 MILLIGRAM, TABLET (UNCOATED)
     Route: 048
     Dates: start: 20151214
  2. CORTISONE [Concomitant]
     Active Substance: CORTISONE
     Indication: Multiple sclerosis relapse
     Dosage: 1000 MILLIGRAM, 3 AS NECESSARY (3 AS NECCESSARY)
     Route: 042
  3. LIORESAL [Concomitant]
     Active Substance: BACLOFEN
     Indication: Muscle spasticity
     Dosage: 10 MILLIGRAM (EVERY 0.25 DAY)
     Route: 048
     Dates: start: 2012
  4. MIRTAZAPINE [Concomitant]
     Active Substance: MIRTAZAPINE
     Indication: Depression
     Dosage: 30 MILLIGRAM, QD (EVERY ONE DAY)
     Route: 048
     Dates: start: 2018

REACTIONS (1)
  - Lymphopenia [Not Recovered/Not Resolved]

NARRATIVE: CASE EVENT DATE: 20210702
